FAERS Safety Report 5396058-6 (Version None)
Quarter: 2007Q3

REPORT INFORMATION
  Report Type: 
  Country: None (occurrence: None)
  Receive Date: 20070725
  Receipt Date: 20070724
  Transmission Date: 20080115
  Serious: Yes (Death)
  Sender: FDA-Public Use
  Company Number: US-RB-007480-07

PATIENT
  Sex: Female

DRUGS (2)
  1. SUBOXONE [Suspect]
     Route: 060
     Dates: start: 20070601
  2. SUBOXONE [Suspect]
     Route: 060
     Dates: start: 20070601, end: 20070701

REACTIONS (1)
  - MYOCARDIAL INFARCTION [None]
